FAERS Safety Report 9324973 (Version 2)
Quarter: 2013Q2

REPORT INFORMATION
  Report Type: Spontaneous
  Country: GB (occurrence: None)
  Receive Date: 20130530
  Receipt Date: 20130604
  Transmission Date: 20140414
  Serious: Yes (Disabling)
  Sender: FDA-Public Use
  Company Number: AUR-APL-2013-04313

PATIENT
  Age: 61 Year
  Sex: Male
  Weight: 89 kg

DRUGS (6)
  1. RAMIPRIL (RAMIPRIL) [Suspect]
     Indication: PRODUCT USED FOR UNKNOWN INDICATION
     Dates: start: 20130226
  2. AMOXICILLIN (AMOXICILLIN) [Concomitant]
  3. AVAMYS (FLUTICASONE FUROATE) [Concomitant]
  4. CHLORAMPHENICOL(CHLORAMPHENICOL) [Concomitant]
  5. INDAPAMIDE (INDAPAMIDE) [Concomitant]
  6. ZOPICLONE (ZOPICLONE) [Concomitant]

REACTIONS (3)
  - Myalgia [None]
  - Rash [None]
  - Fatigue [None]
